FAERS Safety Report 23755233 (Version 1)
Quarter: 2024Q2

REPORT INFORMATION
  Report Type: Spontaneous
  Country: US (occurrence: US)
  Receive Date: 20240418
  Receipt Date: 20240418
  Transmission Date: 20240716
  Serious: Yes (Other)
  Sender: FDA-Public Use
  Company Number: US-JNJFOC-20240434755

PATIENT
  Sex: Female

DRUGS (1)
  1. ELMIRON [Suspect]
     Active Substance: PENTOSAN POLYSULFATE SODIUM
     Indication: Cystitis interstitial
     Dosage: VARYING FREQUENCIES OF THREE TIMES DAILY, TWICE DAILY (200 MG/DAY) AND ONCE DAILY
     Route: 048

REACTIONS (2)
  - Pigmentary maculopathy [Not Recovered/Not Resolved]
  - Off label use [Unknown]
